FAERS Safety Report 4293993-7 (Version None)
Quarter: 2004Q1

REPORT INFORMATION
  Report Type: 
  Country: None (occurrence: None)
  Receive Date: 20040212
  Receipt Date: 20031201
  Transmission Date: 20041129
  Serious: Yes (Hospitalization)
  Sender: FDA-Public Use
  Company Number: WAES 0312CAN00008

PATIENT
  Age: 77 Year
  Sex: Female
  Weight: 38 kg

DRUGS (11)
  1. ZETIA [Suspect]
     Indication: DYSLIPIDAEMIA
     Route: 048
     Dates: start: 20031127
  2. WARFARIN SODIUM [Concomitant]
  3. WARFARIN SODIUM [Concomitant]
  4. WARFARIN SODIUM [Concomitant]
     Dates: start: 20031118, end: 20031127
  5. WARFARIN SODIUM [Concomitant]
     Dates: start: 20031128, end: 20031129
  6. WARFARIN SODIUM [Concomitant]
     Dates: start: 20031130, end: 20031130
  7. WARFARIN SODIUM [Concomitant]
     Dates: start: 20031201, end: 20031201
  8. WARFARIN SODIUM [Concomitant]
     Dates: start: 20031202, end: 20031202
  9. WARFARIN SODIUM [Concomitant]
     Dates: start: 20031203, end: 20031207
  10. WARFARIN SODIUM [Concomitant]
     Dates: start: 20031208, end: 20031214
  11. WARFARIN SODIUM [Concomitant]
     Dates: start: 20031215

REACTIONS (1)
  - INTERNATIONAL NORMALISED RATIO INCREASED [None]
